FAERS Safety Report 9031527 (Version 1)
Quarter: 2013Q1

REPORT INFORMATION
  Report Type: Report from Study
  Country: US (occurrence: US)
  Receive Date: 20130124
  Receipt Date: 20130124
  Transmission Date: 20140127
  Serious: Yes (Hospitalization)
  Sender: FDA-Public Use
  Company Number: US-EISAI INC-E7389-02199-CLI-US

PATIENT
  Age: 70 Year
  Sex: Female
  Weight: 122 kg

DRUGS (12)
  1. E7389 (BOLD) [Suspect]
     Indication: BREAST CANCER METASTATIC
     Route: 041
     Dates: start: 20120106
  2. CAPECITABINE [Concomitant]
     Indication: BREAST CANCER METASTATIC
     Route: 048
     Dates: start: 20120309, end: 20120320
  3. FOSAMAX [Concomitant]
     Indication: OSTEOPOROSIS
     Route: 048
     Dates: start: 201012
  4. ASPIRIN [Concomitant]
     Indication: HYPERTENSION
     Route: 048
     Dates: start: 2007
  5. ASPIRIN [Concomitant]
     Indication: PERIPHERAL VASCULAR DISORDER
  6. CYMBALTA [Concomitant]
     Indication: NEUROPATHY PERIPHERAL
     Route: 048
     Dates: start: 200812
  7. FENOFIBRATE [Concomitant]
     Indication: HYPERTRIGLYCERIDAEMIA
     Dates: start: 2007
  8. HUMULIN N [Concomitant]
     Indication: TYPE 2 DIABETES MELLITUS
     Route: 058
     Dates: start: 2007
  9. NOVOLOG [Concomitant]
     Indication: TYPE 2 DIABETES MELLITUS
     Route: 058
     Dates: start: 2007
  10. MICARDIS [Concomitant]
     Indication: HYPERTENSION
     Route: 048
     Dates: start: 201109
  11. SIMVASTATIN [Concomitant]
     Indication: HYPERLIPIDAEMIA
     Route: 048
     Dates: start: 2000
  12. NEXIUM [Concomitant]
     Indication: GASTROOESOPHAGEAL REFLUX DISEASE
     Route: 048
     Dates: start: 20120116

REACTIONS (1)
  - Pulmonary embolism [Recovered/Resolved]
